FAERS Safety Report 20234542 (Version 1)
Quarter: 2021Q4

REPORT INFORMATION
  Report Type: Spontaneous
  Country: US (occurrence: US)
  Receive Date: 20211227
  Receipt Date: 20211227
  Transmission Date: 20220303
  Serious: Yes (Hospitalization, Other)
  Sender: FDA-Public Use
  Company Number: US-PURDUE-USA-2020-0161052

PATIENT
  Sex: Male
  Weight: 159 kg

DRUGS (12)
  1. OXYCONTIN [Suspect]
     Active Substance: OXYCODONE HYDROCHLORIDE
     Indication: Pain
     Dosage: 40 MG, TID, 1 TABLET EVERY 8 HOURS
     Route: 048
  2. OXYCONTIN [Suspect]
     Active Substance: OXYCODONE HYDROCHLORIDE
     Indication: Back pain
     Dosage: 80 MG, TID, 2 TABLETS EVERY 8 HOURS
     Route: 048
  3. OXYCONTIN [Suspect]
     Active Substance: OXYCODONE HYDROCHLORIDE
     Indication: Lumbosacral plexopathy
     Dosage: 200 MG, UNK
     Route: 048
  4. OXYCONTIN [Suspect]
     Active Substance: OXYCODONE HYDROCHLORIDE
     Indication: Alopecia
  5. OXYCODONE HYDROCHLORIDE [Suspect]
     Active Substance: OXYCODONE HYDROCHLORIDE
     Indication: Pain management
     Dosage: UNKNOWN
     Route: 048
  6. OXYCODONE HYDROCHLORIDE [Suspect]
     Active Substance: OXYCODONE HYDROCHLORIDE
     Indication: Pain
     Dosage: 30 MG, UPTO 3 TABLETS EVERY 3 HOURS AS NEEDED FOR PAIN
     Route: 048
  7. OXYCODONE HYDROCHLORIDE [Suspect]
     Active Substance: OXYCODONE HYDROCHLORIDE
     Indication: Back pain
  8. OXYCODONE HYDROCHLORIDE [Suspect]
     Active Substance: OXYCODONE HYDROCHLORIDE
     Indication: Lumbosacral plexopathy
  9. OXYCODONE HYDROCHLORIDE [Suspect]
     Active Substance: OXYCODONE HYDROCHLORIDE
     Indication: Alopecia
  10. PROPECIA [Suspect]
     Active Substance: FINASTERIDE
     Indication: Pain
     Dosage: 1 MG, DAILY, 1 TABLET
     Route: 048
  11. SEROQUEL [Suspect]
     Active Substance: QUETIAPINE FUMARATE
     Indication: Product used for unknown indication
     Dosage: 25 MG, TAKE 1 TO 2 TABLET PO QHS
     Route: 048
  12. VIAGRA [Suspect]
     Active Substance: SILDENAFIL CITRATE
     Indication: Product used for unknown indication
     Dosage: 100 MG, HALF TO 1 TABLET 30 MINUTES PRIOR TO SEXUAL ACTIVITY
     Route: 048

REACTIONS (11)
  - Drug dependence [Unknown]
  - Drug withdrawal syndrome [Unknown]
  - Attention deficit hyperactivity disorder [Unknown]
  - Alopecia [Unknown]
  - Disturbance in attention [Unknown]
  - Affect lability [Unknown]
  - Quality of life decreased [Recovering/Resolving]
  - Back pain [Unknown]
  - Lumbosacral plexopathy [Unknown]
  - Head titubation [Unknown]
  - Grip strength decreased [Unknown]
